FAERS Safety Report 15536576 (Version 3)
Quarter: 2019Q1

REPORT INFORMATION
  Report Type: Spontaneous
  Country: PT (occurrence: PT)
  Receive Date: 20181022
  Receipt Date: 20190129
  Transmission Date: 20190417
  Serious: Yes (Hospitalization, Other)
  Sender: FDA-Public Use
  Company Number: PHHY2018PT128146

PATIENT
  Age: 58 Year
  Sex: Female

DRUGS (3)
  1. THALIDOMIDE [Suspect]
     Active Substance: THALIDOMIDE
     Indication: LIGHT CHAIN DISEASE
     Dosage: SIX CYCLES
     Route: 065
  2. DEXAMETHASONE. [Suspect]
     Active Substance: DEXAMETHASONE
     Indication: LIGHT CHAIN DISEASE
     Dosage: SIX CYCLES
     Route: 065
  3. BORTEZOMIB. [Suspect]
     Active Substance: BORTEZOMIB
     Indication: LIGHT CHAIN DISEASE
     Dosage: SIX CYCLES
     Route: 065

REACTIONS (9)
  - Congestive cardiomyopathy [Recovering/Resolving]
  - Neuropathy peripheral [Recovered/Resolved]
  - Ventricular dysfunction [Recovering/Resolving]
  - Cardiac dysfunction [Recovering/Resolving]
  - Drug ineffective [Unknown]
  - Chronic kidney disease [Unknown]
  - Cardiotoxicity [Recovering/Resolving]
  - Hypokinesia [Unknown]
  - Disease progression [Unknown]
